FAERS Safety Report 8074085-8 (Version None)
Quarter: 2011Q4

REPORT INFORMATION
  Report Type: 
  Country: None (occurrence: None)
  Receive Date: 20111221
  Receipt Date: 20101213
  Transmission Date: 20120403
  Serious: Yes (Other)
  Sender: FDA-Public Use
  Company Number: PHHY2010US09938

PATIENT
  Age: 83 Year
  Sex: Female

DRUGS (1)
  1. EXJADE [Suspect]
     Dosage: 500 MG, DAILY, ORAL, 125 MG, BID, ORAL, 1 DF
     Route: 048
     Dates: start: 20100206, end: 20100212

REACTIONS (1)
  - DIARRHOEA HAEMORRHAGIC [None]
